FAERS Safety Report 17284052 (Version 1)
Quarter: 2020Q1

REPORT INFORMATION
  Report Type: Spontaneous
  Country: US (occurrence: US)
  Receive Date: 20191230
  Receipt Date: 20191230
  Transmission Date: 20200409
  Serious: No
  Sender: FDA-Public Use
  Company Number: None

PATIENT
  Sex: Female

DRUGS (1)
  1. SILDENAFIL CITRATE. [Suspect]
     Active Substance: SILDENAFIL CITRATE
     Indication: CONNECTIVE TISSUE DISORDER
     Route: 048
     Dates: start: 20191220

REACTIONS (5)
  - Product substitution issue [None]
  - Lung disorder [None]
  - Hypoaesthesia [None]
  - Paraesthesia oral [None]
  - Somnolence [None]
